FAERS Safety Report 9394335 (Version 2)
Quarter: 2013Q3

REPORT INFORMATION
  Report Type: Spontaneous
  Country: AU (occurrence: AU)
  Receive Date: 20130711
  Receipt Date: 20130802
  Transmission Date: 20140515
  Serious: Yes (Death, Life-Threatening, Hospitalization)
  Sender: FDA-Public Use
  Company Number: AU-ASTRAZENECA-2013SE51442

PATIENT
  Age: 83 Year
  Sex: Male

DRUGS (6)
  1. ROSUVASTATIN [Suspect]
     Route: 048
  2. FUSIDIC ACID [Interacting]
     Indication: STAPHYLOCOCCAL INFECTION
     Route: 048
  3. RIFAMPIN [Suspect]
     Indication: STAPHYLOCOCCAL INFECTION
     Route: 048
  4. METOPROLOL [Concomitant]
     Indication: MYOCARDIAL ISCHAEMIA
  5. ASPIRIN [Concomitant]
     Indication: MYOCARDIAL ISCHAEMIA
  6. AMLODIPINE [Concomitant]
     Indication: MYOCARDIAL ISCHAEMIA

REACTIONS (7)
  - Drug interaction [Unknown]
  - Delirium [Fatal]
  - Renal impairment [Fatal]
  - Rhabdomyolysis [Fatal]
  - Renal failure acute [Fatal]
  - Hypotension [Fatal]
  - Intestinal haemorrhage [Fatal]
